FAERS Safety Report 8549900-1 (Version None)
Quarter: 2012Q3

REPORT INFORMATION
  Report Type: 
  Country: None (occurrence: None)
  Receive Date: 20120730
  Receipt Date: 20120320
  Transmission Date: 20120928
  Serious: No
  Sender: FDA-Public Use
  Company Number: US-GLAXOSMITHKLINE-A0970531A

PATIENT
  Age: 32 Year
  Sex: Female

DRUGS (2)
  1. NO CONCURRENT MEDICATION [Concomitant]
  2. IMITREX [Suspect]
     Indication: MIGRAINE
     Dosage: 25MG AS REQUIRED
     Route: 048
     Dates: start: 20020101, end: 20020101

REACTIONS (4)
  - PARAESTHESIA [None]
  - CHEST DISCOMFORT [None]
  - WHEEZING [None]
  - NAUSEA [None]
